FAERS Safety Report 23502777 (Version 1)
Quarter: 2024Q1

REPORT INFORMATION
  Report Type: Spontaneous
  Country: US (occurrence: US)
  Receive Date: 20240208
  Receipt Date: 20240208
  Transmission Date: 20240409
  Serious: No
  Sender: FDA-Public Use
  Company Number: US-INTRA-CELLULAR THERAPIES, INC.-2023ICT01031

PATIENT
  Age: 43 Year
  Sex: Female

DRUGS (10)
  1. CAPLYTA [Suspect]
     Active Substance: LUMATEPERONE
     Indication: Bipolar II disorder
     Dosage: UNK
  2. CAPLYTA [Suspect]
     Active Substance: LUMATEPERONE
     Indication: Major depression
  3. CAPLYTA [Suspect]
     Active Substance: LUMATEPERONE
     Indication: Generalised anxiety disorder
  4. CAPLYTA [Suspect]
     Active Substance: LUMATEPERONE
     Indication: Bipolar II disorder
     Dosage: UNK
  5. CAPLYTA [Suspect]
     Active Substance: LUMATEPERONE
     Indication: Major depression
  6. CAPLYTA [Suspect]
     Active Substance: LUMATEPERONE
     Indication: Generalised anxiety disorder
  7. LITHIUM [Concomitant]
     Active Substance: LITHIUM
     Dosage: 450 UNK
  8. ATIVAN [Concomitant]
     Active Substance: LORAZEPAM
  9. AMBIEN [Concomitant]
     Active Substance: ZOLPIDEM TARTRATE
  10. ABILIFY [Concomitant]
     Active Substance: ARIPIPRAZOLE
     Dosage: TAPER

REACTIONS (5)
  - Anxiety [Unknown]
  - Mood swings [Unknown]
  - Disturbance in attention [Unknown]
  - Feeling abnormal [Unknown]
  - Brain fog [Unknown]
